FAERS Safety Report 18434396 (Version 1)
Quarter: 2020Q4

REPORT INFORMATION
  Report Type: Spontaneous
  Country: US (occurrence: US)
  Receive Date: 20201028
  Receipt Date: 20201028
  Transmission Date: 20210114
  Serious: Yes (Other)
  Sender: FDA-Public Use
  Company Number: US-DRREDDYS-USA/USA/20/0128292

PATIENT
  Age: 19 Year
  Sex: Male

DRUGS (3)
  1. ZENATANE [Suspect]
     Active Substance: ISOTRETINOIN
     Dosage: RMA ISSUE DATE:5/26/2020 11:04:15 AM; 7/8/2020 3:08:17 PM
     Route: 048
  2. ZENATANE [Suspect]
     Active Substance: ISOTRETINOIN
     Indication: PRODUCT USED FOR UNKNOWN INDICATION
     Dosage: RMA ISSUE DATE: 9/18/2020 5:21:23 PM; 8/11/2020 11:17:23 AM
     Route: 048
  3. ZENATANE [Suspect]
     Active Substance: ISOTRETINOIN
     Dosage: RMA ISSUE DATE: 3/25/2020 1:03:07 AM
     Route: 048

REACTIONS (1)
  - Depressive symptom [Unknown]
